FAERS Safety Report 8513348-6 (Version None)
Quarter: 2012Q3

REPORT INFORMATION
  Report Type: 
  Country: None (occurrence: None)
  Receive Date: 20120716
  Receipt Date: 20120711
  Transmission Date: 20120928
  Serious: Yes (Other)
  Sender: FDA-Public Use
  Company Number: CHPA2012US014239

PATIENT
  Age: 73 Year
  Sex: Female

DRUGS (2)
  1. ZYRTEC [Suspect]
     Dosage: UNK, UNK
  2. VOLTAREN [Suspect]
     Indication: OSTEOARTHRITIS
     Dosage: 2 G, BID PRN
     Route: 061
     Dates: start: 20100101

REACTIONS (3)
  - DRY MOUTH [None]
  - BURSITIS [None]
  - UNDERDOSE [None]
